FAERS Safety Report 18639252 (Version 1)
Quarter: 2020Q4

REPORT INFORMATION
  Report Type: Other
  Country: GB (occurrence: GB)
  Receive Date: 20201219
  Receipt Date: 20201219
  Transmission Date: 20210114
  Serious: Yes (Disabling, Other)
  Sender: FDA-Public Use
  Company Number: GB-STRIDES ARCOLAB LIMITED-2020SP015562

PATIENT
  Age: 22 Year
  Sex: Female

DRUGS (3)
  1. HYDROCORTISONE. [Suspect]
     Active Substance: HYDROCORTISONE
     Indication: ECZEMA
     Dosage: UNK
     Route: 061
     Dates: start: 2018, end: 20200428
  2. EUMOVATE [Suspect]
     Active Substance: CLOBETASONE BUTYRATE
     Indication: ECZEMA
     Dosage: UNK
     Route: 061
     Dates: end: 20200428
  3. FUCIDIN H [FUSIDATE SODIUM;HYDROCORTISONE ACETATE] [Suspect]
     Active Substance: FUSIDATE SODIUM\HYDROCORTISONE ACETATE
     Indication: ECZEMA
     Dosage: UNK
     Route: 061
     Dates: start: 2019, end: 20200428

REACTIONS (5)
  - Eczema [Unknown]
  - Steroid withdrawal syndrome [Unknown]
  - Skin exfoliation [Not Recovered/Not Resolved]
  - Neuralgia [Recovered/Resolved]
  - Dermatitis [Not Recovered/Not Resolved]

NARRATIVE: CASE EVENT DATE: 2018
